FAERS Safety Report 19246630 (Version 1)
Quarter: 2021Q2

REPORT INFORMATION
  Report Type: Spontaneous
  Country: US (occurrence: US)
  Receive Date: 20210512
  Receipt Date: 20210512
  Transmission Date: 20210717
  Serious: Yes (Hospitalization)
  Sender: FDA-Public Use
  Company Number: None

PATIENT
  Sex: Male
  Weight: 92.9 kg

DRUGS (3)
  1. PEMBROLIZUMAB. [Suspect]
     Active Substance: PEMBROLIZUMAB
     Dates: start: 20210414
  2. CARBOPLATIN. [Suspect]
     Active Substance: CARBOPLATIN
     Dates: start: 20210414
  3. ALIMTA [Suspect]
     Active Substance: PEMETREXED DISODIUM
     Dates: start: 20210414

REACTIONS (3)
  - Mental status changes [None]
  - Cough [None]
  - Oedema peripheral [None]

NARRATIVE: CASE EVENT DATE: 20210502
